FAERS Safety Report 7722478-8 (Version None)
Quarter: 2011Q3

REPORT INFORMATION
  Report Type: 
  Country: None (occurrence: None)
  Receive Date: 20110831
  Receipt Date: 20110824
  Transmission Date: 20111222
  Serious: Yes (Hospitalization)
  Sender: FDA-Public Use
  Company Number: DE-PFIZER INC-2011197740

PATIENT
  Age: 87 Year
  Sex: Male

DRUGS (1)
  1. PANTOPRAZOLE [Suspect]
     Indication: GASTRIC HAEMORRHAGE
     Dosage: UNK
     Route: 041
     Dates: start: 20110601

REACTIONS (3)
  - INFUSION SITE ABSCESS [None]
  - INFUSION SITE CELLULITIS [None]
  - INFUSION SITE HAEMATOMA [None]
